FAERS Safety Report 9031735 (Version 1)
Quarter: 2013Q1

REPORT INFORMATION
  Report Type: Spontaneous
  Country: US (occurrence: US)
  Receive Date: 20130124
  Receipt Date: 20130124
  Transmission Date: 20140127
  Serious: No
  Sender: FDA-Public Use
  Company Number: US-MUTUAL PHARMACEUTICAL COMPANY, INC.-CLCY20120108

PATIENT
  Sex: Male
  Weight: 86.26 kg

DRUGS (8)
  1. COLCRYS [Suspect]
     Indication: GOUT
     Route: 048
     Dates: start: 2011
  2. PREDNISONE [Suspect]
     Indication: RENAL TRANSPLANT
     Route: 048
     Dates: start: 201207
  3. PREDNISONE [Suspect]
     Route: 048
     Dates: start: 2011, end: 201207
  4. PREDNISONE [Suspect]
     Route: 048
     Dates: start: 1996, end: 2011
  5. INDOMETHACIN [Concomitant]
     Indication: GOUT
     Route: 048
  6. ALLOPURINOL [Concomitant]
     Indication: GOUT
     Route: 048
  7. HYDRALAZINE [Concomitant]
     Indication: HYPERTENSION
     Route: 048
  8. UNSPECIFIED MEDICATION [Concomitant]
     Indication: HYPERTENSION
     Route: 048

REACTIONS (1)
  - Blood urine present [Recovered/Resolved]
